FAERS Safety Report 4405794-7 (Version None)
Quarter: 2004Q3

REPORT INFORMATION
  Report Type: 
  Country: None (occurrence: None)
  Receive Date: 20040723
  Receipt Date: 20031209
  Transmission Date: 20050211
  Serious: Yes (Other)
  Sender: FDA-Public Use
  Company Number: US-GLAXOSMITHKLINE-A0443071A

PATIENT
  Age: 35 Year
  Sex: Female
  Weight: 140.9 kg

DRUGS (5)
  1. AVANDIA [Suspect]
     Dosage: 4MG PER DAY
     Route: 048
     Dates: start: 20000214
  2. LOESTRIN 1.5/30 [Concomitant]
     Route: 048
  3. DYAZIDE [Concomitant]
     Route: 048
  4. PAXIL [Concomitant]
     Route: 048
  5. AUGMENTIN '250' [Concomitant]
     Route: 048

REACTIONS (12)
  - CARDIAC FAILURE CONGESTIVE [None]
  - CHEST DISCOMFORT [None]
  - COUGH [None]
  - DIASTOLIC DYSFUNCTION [None]
  - DYSPNOEA [None]
  - DYSPNOEA EXERTIONAL [None]
  - FATIGUE [None]
  - HYPERTENSION [None]
  - MITRAL VALVE INCOMPETENCE [None]
  - OEDEMA [None]
  - OXYGEN SATURATION DECREASED [None]
  - VENTRICULAR HYPERTROPHY [None]
